FAERS Safety Report 5201023-5 (Version None)
Quarter: 2007Q1

REPORT INFORMATION
  Report Type: 
  Country: None (occurrence: None)
  Receive Date: 20070103
  Receipt Date: 20061222
  Transmission Date: 20070707
  Serious: No
  Sender: FDA-Public Use
  Company Number: 33209

PATIENT

DRUGS (2)
  1. NOREPINEPHRINE BITARTRATE [Suspect]
  2. BUMETANIDE [Suspect]

REACTIONS (1)
  - MEDICATION ERROR [None]
